FAERS Safety Report 20527676 (Version 1)
Quarter: 2022Q1

REPORT INFORMATION
  Report Type: Spontaneous
  Country: US (occurrence: US)
  Receive Date: 20220228
  Receipt Date: 20220228
  Transmission Date: 20220423
  Serious: Yes (Hospitalization, Other)
  Sender: FDA-Public Use
  Company Number: US-GLAXOSMITHKLINE-US2022GSK035065

PATIENT
  Age: 20 Year
  Sex: Female

DRUGS (1)
  1. LAMOTRIGINE [Suspect]
     Active Substance: LAMOTRIGINE
     Indication: Bipolar II disorder
     Dosage: 50 MG, WE

REACTIONS (15)
  - Drug reaction with eosinophilia and systemic symptoms [Recovered/Resolved]
  - Epstein-Barr virus infection [Recovered/Resolved]
  - Rash maculo-papular [Recovered/Resolved]
  - Pyrexia [Recovered/Resolved]
  - Nausea [Recovered/Resolved]
  - Vomiting [Recovered/Resolved]
  - Oliguria [Recovered/Resolved]
  - Dermatitis exfoliative generalised [Recovered/Resolved]
  - Hepatosplenomegaly [Recovered/Resolved]
  - Leukocytosis [Recovered/Resolved]
  - Eosinophilia [Recovered/Resolved]
  - Transaminases increased [Recovered/Resolved]
  - Anuria [Recovered/Resolved]
  - Acute kidney injury [Recovered/Resolved]
  - Thrombocytopenia [Recovered/Resolved]
